FAERS Safety Report 7617011-5 (Version None)
Quarter: 2011Q3

REPORT INFORMATION
  Report Type: 
  Country: None (occurrence: None)
  Receive Date: 20110718
  Receipt Date: 20110707
  Transmission Date: 20111222
  Serious: Yes (Hospitalization)
  Sender: FDA-Public Use
  Company Number: FR-BRISTOL-MYERS SQUIBB COMPANY-15905185

PATIENT
  Age: 80 Year
  Sex: Female
  Weight: 60 kg

DRUGS (5)
  1. GLUCOPHAGE [Suspect]
     Indication: TYPE 2 DIABETES MELLITUS
     Dosage: 3DF= 1 DF, 3 IN 1 D.
     Dates: end: 20110311
  2. ASPIRIN [Concomitant]
     Dosage: 1DF= 1 DF, NOON. STRENGTH-75.
  3. ATACAND [Concomitant]
     Dosage: 1DF, MORNING.
  4. CORDARONE [Suspect]
     Indication: ATRIAL TACHYCARDIA
     Dosage: 1DF= 1 DF MORNING. TABLET.
     Dates: end: 20110311
  5. CRESTOR [Concomitant]
     Dosage: 1 DF IN MORNING AND 1 IN EVENING

REACTIONS (1)
  - CYTOLYTIC HEPATITIS [None]
